FAERS Safety Report 6303866-3 (Version None)
Quarter: 2009Q3

REPORT INFORMATION
  Report Type: 
  Country: None (occurrence: None)
  Receive Date: 20090805
  Receipt Date: 20090729
  Transmission Date: 20100115
  Serious: Yes (Hospitalization)
  Sender: FDA-Public Use
  Company Number: APP200900452

PATIENT
  Age: 3 Year

DRUGS (3)
  1. HEPARIN SODIUM INJECTION [Suspect]
     Indication: DRUG USE FOR UNKNOWN INDICATION
     Dosage: 1250 IU
     Route: 015
  2. DIANEAL [Suspect]
     Indication: DRUG USE FOR UNKNOWN INDICATION
  3. IMIPENEM (IMIPENEM) [Suspect]
     Indication: DRUG USE FOR UNKNOWN INDICATION

REACTIONS (1)
  - BRADYCARDIA [None]
